FAERS Safety Report 24624489 (Version 1)
Quarter: 2024Q4

REPORT INFORMATION
  Report Type: Report from Study
  Country: US (occurrence: US)
  Receive Date: 20241115
  Receipt Date: 20241115
  Transmission Date: 20250115
  Serious: Yes (Hospitalization)
  Sender: RECORDATI
  Company Number: US-RECORDATI RARE DISEASE INC.-2024008983

PATIENT

DRUGS (20)
  1. CARBAGLU [Suspect]
     Active Substance: CARGLUMIC ACID
     Indication: Product used for unknown indication
     Dosage: 15 DOSAGE FORM (TABLET), BID
  2. CARBAGLU [Suspect]
     Active Substance: CARGLUMIC ACID
     Dosage: 15 DOSAGE FORM (TABLET), BID
     Dates: start: 2024, end: 2024
  3. CARBAGLU [Suspect]
     Active Substance: CARGLUMIC ACID
     Dosage: 15 DOSAGE FORM (TABLETS), BID
     Dates: start: 2024
  4. RAVICTI [Concomitant]
     Active Substance: GLYCEROL PHENYLBUTYRATE
     Indication: Product used for unknown indication
     Dosage: 1.1 GRAM/ML, LIQUID
  5. CREON [Concomitant]
     Active Substance: PANCRELIPASE AMYLASE\PANCRELIPASE LIPASE\PANCRELIPASE PROTEASE
     Indication: Product used for unknown indication
     Dosage: 24-76-120K, CAPSULE DR
  6. FAMOTIDINE [Concomitant]
     Active Substance: FAMOTIDINE
     Indication: Product used for unknown indication
  7. CHOLINE BITARTRATE [Concomitant]
     Active Substance: CHOLINE BITARTRATE
     Indication: Product used for unknown indication
     Dosage: UNK
  8. MAGNESIUM OXIDE [Concomitant]
     Active Substance: MAGNESIUM OXIDE
     Indication: Product used for unknown indication
     Dosage: UNK
  9. ANTI DIARRHEAL [Concomitant]
     Active Substance: LOPERAMIDE HYDROCHLORIDE
     Indication: Product used for unknown indication
     Dosage: UNK
  10. CALCIUM CITRATE\VITAMIN D [Concomitant]
     Active Substance: CALCIUM CITRATE\VITAMIN D
     Indication: Product used for unknown indication
     Dosage: UNK
  11. SELENIUM [Concomitant]
     Active Substance: SELENIUM
     Indication: Product used for unknown indication
     Dosage: UNK
  12. SPIRONOLACTONE [Concomitant]
     Active Substance: SPIRONOLACTONE
     Indication: Product used for unknown indication
     Dosage: UNK
  13. VITAMIN B COMPLEX [Concomitant]
     Active Substance: CYANOCOBALAMIN\DEXPANTHENOL\NIACINAMIDE\PYRIDOXINE HYDROCHLORIDE\RIBOFLAVIN 5^-PHOSPHATE SODIUM\THIA
     Indication: Product used for unknown indication
  14. FERROUS SULFATE [Concomitant]
     Active Substance: FERROUS SULFATE
     Indication: Product used for unknown indication
     Dosage: UNK
  15. ENALAPRIL [Concomitant]
     Active Substance: ENALAPRIL
     Indication: Product used for unknown indication
     Dosage: UNK
  16. SODIUM PHENYLBUTYRATE [Concomitant]
     Active Substance: SODIUM PHENYLBUTYRATE
     Indication: Product used for unknown indication
     Dosage: UNK
  17. URSODIOL [Concomitant]
     Active Substance: URSODIOL
     Indication: Product used for unknown indication
     Dosage: UNK
  18. ZYRTEC [Concomitant]
     Active Substance: CETIRIZINE HYDROCHLORIDE
     Indication: Product used for unknown indication
     Dosage: UNK
  19. AMPHETAMINE [Concomitant]
     Active Substance: AMPHETAMINE
     Indication: Product used for unknown indication
     Dosage: UNK
  20. DEXTROAMPHETAMINE [Concomitant]
     Active Substance: DEXTROAMPHETAMINE
     Indication: Product used for unknown indication
     Dosage: UNK

REACTIONS (1)
  - Hospitalisation [Unknown]
